FAERS Safety Report 4324720-2 (Version None)
Quarter: 2004Q1

REPORT INFORMATION
  Report Type: 
  Country: None (occurrence: None)
  Receive Date: 20040323
  Receipt Date: 20040317
  Transmission Date: 20041129
  Serious: Yes (Hospitalization)
  Sender: FDA-Public Use
  Company Number: 2004-01-0596

PATIENT
  Age: 70 Year
  Sex: Female

DRUGS (2)
  1. GENTAMICIN [Suspect]
     Indication: SKIN ULCER
     Dosage: INTRAVENOUS  (ONCE)
     Route: 042
  2. CEFOTIAM HYDROCHLORIDE [Concomitant]

REACTIONS (6)
  - ANAPHYLACTIC REACTION [None]
  - NAUSEA [None]
  - SKIN TEST POSITIVE [None]
  - TACHYCARDIA [None]
  - TYPE IV HYPERSENSITIVITY REACTION [None]
  - VERTIGO [None]
